FAERS Safety Report 8697193 (Version 4)
Quarter: 2013Q2

REPORT INFORMATION
  Report Type: Report from Study
  Country: US (occurrence: US)
  Receive Date: 20120801
  Receipt Date: 20130617
  Transmission Date: 20140414
  Serious: Yes (Hospitalization, Other)
  Sender: FDA-Public Use
  Company Number: US-PFIZER INC-2010088300

PATIENT
  Age: 43 Year
  Sex: Female
  Weight: 95 kg

DRUGS (16)
  1. DILANTIN-125 [Suspect]
     Dosage: 100 MG,5X/DAY
     Dates: start: 2006, end: 2011
  2. KLONOPIN [Suspect]
     Indication: CONVULSION
     Dosage: 2 MG, 3X/DAY
     Route: 048
     Dates: start: 2004
  3. BENTYL [Concomitant]
     Indication: GASTROINTESTINAL DISORDER
     Dosage: 1 TO 2 MG, DAILY
     Dates: start: 200903
  4. BENTYL [Concomitant]
     Indication: DIVERTICULITIS
     Dosage: 10 MG, 4X/DAY
  5. BENTYL [Concomitant]
     Indication: COLITIS
  6. BENTYL [Concomitant]
     Indication: COLITIS
  7. BENTYL [Concomitant]
     Indication: ABDOMINAL PAIN UPPER
  8. NEXIUM [Concomitant]
     Indication: DYSPEPSIA
     Dosage: 40 MG,DAILY
     Dates: start: 2009
  9. NEXIUM [Concomitant]
     Indication: GASTROOESOPHAGEAL REFLUX DISEASE
  10. NEXIUM [Concomitant]
     Indication: GASTRIC DISORDER
  11. SYMBICORT [Concomitant]
     Indication: ASTHMA
     Dosage: 160 MG/ 4.5 MCG
  12. SYMBICORT [Concomitant]
     Indication: LUNG DISORDER
  13. ACETAMINOPHEN/ASPIRIN/CAFFEINE [Concomitant]
     Indication: MIGRAINE
     Dosage: UNK
  14. BENADRYL [Concomitant]
     Indication: HYPERSENSITIVITY
     Dosage: UNK
  15. PROMETHAZINE HYDROCHLORIDE [Concomitant]
     Indication: NAUSEA
     Dosage: UNK
  16. PROMETHAZINE HYDROCHLORIDE [Concomitant]
     Indication: VOMITING

REACTIONS (9)
  - Toxicity to various agents [Unknown]
  - Coma [Unknown]
  - Convulsion [Unknown]
  - Bronchitis [Recovering/Resolving]
  - Headache [Unknown]
  - Stress [Unknown]
  - Emotional disorder [Unknown]
  - Anticonvulsant drug level decreased [Unknown]
  - Influenza [Recovering/Resolving]
